FAERS Safety Report 7355323-3 (Version None)
Quarter: 2011Q1

REPORT INFORMATION
  Report Type: 
  Country: None (occurrence: None)
  Receive Date: 20110316
  Receipt Date: 20110311
  Transmission Date: 20110831
  Serious: Yes (Other)
  Sender: FDA-Public Use
  Company Number: GB-TEVA-268091ISR

PATIENT
  Age: 26 Year
  Sex: Female

DRUGS (3)
  1. CLOZAPINE [Suspect]
     Indication: SCHIZOPHRENIA
     Route: 048
     Dates: start: 20110126
  2. CLOZAPINE [Suspect]
     Route: 048
     Dates: start: 20110126
  3. ATENOLOL [Suspect]
     Indication: TACHYCARDIA
     Dates: start: 20110205

REACTIONS (5)
  - DIZZINESS [None]
  - PALPITATIONS [None]
  - TACHYCARDIA [None]
  - BODY TEMPERATURE INCREASED [None]
  - ORTHOSTATIC HYPOTENSION [None]
